FAERS Safety Report 16528264 (Version 1)
Quarter: 2019Q3

REPORT INFORMATION
  Report Type: Spontaneous
  Country: US (occurrence: US)
  Receive Date: 20190704
  Receipt Date: 20190704
  Transmission Date: 20191004
  Serious: No
  Sender: FDA-Public Use
  Company Number: US-GW PHARMA-201904USGW0962

PATIENT

DRUGS (4)
  1. ONFI [Concomitant]
     Active Substance: CLOBAZAM
     Indication: PRODUCT USED FOR UNKNOWN INDICATION
     Dosage: UNK
     Route: 065
  2. EPIDIOLEX [Suspect]
     Active Substance: CANNABIDIOL
     Indication: ENCEPHALOPATHY
     Dosage: 210 MILLIGRAM, BID
     Route: 048
     Dates: start: 20190320, end: 201903
  3. EPIDIOLEX [Suspect]
     Active Substance: CANNABIDIOL
     Dosage: 410 MILLIGRAM, BID
     Route: 048
     Dates: start: 201903, end: 201904
  4. EPIDIOLEX [Suspect]
     Active Substance: CANNABIDIOL
     Dosage: 620 MILLIGRAM, BID (FROM WEEK 4: 820 MILLIGRAM, BID IS SCHEDULED)
     Route: 048
     Dates: start: 201904, end: 201904

REACTIONS (2)
  - Off label use [Unknown]
  - Diarrhoea [Not Recovered/Not Resolved]

NARRATIVE: CASE EVENT DATE: 201903
